FAERS Safety Report 12925070 (Version 1)
Quarter: 2016Q4

REPORT INFORMATION
  Report Type: Spontaneous
  Country: CN (occurrence: CN)
  Receive Date: 20161108
  Receipt Date: 20161108
  Transmission Date: 20170207
  Serious: Yes (Other)
  Sender: FDA-Public Use
  Company Number: CN-ELI_LILLY_AND_COMPANY-CN201610009946

PATIENT
  Age: 60 Year
  Sex: Male

DRUGS (2)
  1. CIS-PLATINUM [Suspect]
     Active Substance: CISPLATIN
     Indication: LUNG ADENOCARCINOMA
  2. ALIMTA [Suspect]
     Active Substance: PEMETREXED DISODIUM
     Indication: LUNG ADENOCARCINOMA
     Dosage: 800 MG, WEEKLY (1/W)
     Route: 042
     Dates: start: 201606

REACTIONS (1)
  - Cardiac disorder [Unknown]
